FAERS Safety Report 7337254-8 (Version None)
Quarter: 2011Q1

REPORT INFORMATION
  Report Type: 
  Country: None (occurrence: None)
  Receive Date: 20110224
  Receipt Date: 20110107
  Transmission Date: 20110831
  Serious: Yes (Death, Disabling, Other)
  Sender: FDA-Public Use
  Company Number: ALA_01166_2010

PATIENT
  Sex: Female

DRUGS (57)
  1. PREVACID [Concomitant]
  2. LOPROX [Concomitant]
  3. LANTUS [Concomitant]
  4. CLOTRIMAZOLE [Concomitant]
  5. PATANOL [Concomitant]
  6. RESERPINE [Concomitant]
  7. REGLAN [Suspect]
     Indication: DIABETIC GASTROPARESIS
     Dosage: (10 MG ORAL)
     Route: 048
     Dates: start: 20010430, end: 20060717
  8. REGLAN [Suspect]
     Indication: NAUSEA
     Dosage: (10 MG ORAL)
     Route: 048
     Dates: start: 20010430, end: 20060717
  9. REGLAN [Suspect]
     Indication: GASTROOESOPHAGEAL REFLUX DISEASE
     Dosage: (10 MG ORAL)
     Route: 048
     Dates: start: 20010430, end: 20060717
  10. PROCHLORPERAZINE [Concomitant]
     Dates: start: 20010430
  11. NEPHROCAPS [Concomitant]
  12. PROPOXYPHENE NAPSYLATE AND ACETAMINOPHEN [Concomitant]
  13. VICODIN [Concomitant]
  14. ULTRAM [Concomitant]
  15. OCUFLOX [Concomitant]
  16. LOPROX [Concomitant]
  17. HUMULIN N [Concomitant]
  18. PLAVIX [Concomitant]
  19. TUSSIONEX [Concomitant]
  20. PERCOCET [Concomitant]
  21. METHYLPREDNISOLONE [Concomitant]
  22. SANTYL [Concomitant]
  23. NEURONTIN [Concomitant]
  24. LORAZEPAM [Concomitant]
  25. FOSRENOL [Concomitant]
  26. TOPROL-XL [Concomitant]
  27. ZOLOFT [Concomitant]
  28. ANTIVERT /00007101/ [Concomitant]
  29. HUMIBID LA [Concomitant]
  30. FLOXIN /00668101/ [Concomitant]
  31. POLYSPORIN /00259001/ [Concomitant]
  32. ZOCOR [Concomitant]
  33. UNSPECIFIED DIETARY SUPPLEMENTS [Concomitant]
  34. CORMAX [Concomitant]
  35. NIZORAL [Concomitant]
  36. CLEOCIN /00166002/ [Concomitant]
  37. CLARITIN /00917501/ [Concomitant]
  38. SODIUM POLYSTRYRENE SULFONATE [Concomitant]
  39. LIPITOR [Concomitant]
  40. TRENTAL [Concomitant]
  41. COREG [Concomitant]
  42. FEMARA [Concomitant]
  43. METOCLOPRAMIDE [Suspect]
     Indication: GASTROOESOPHAGEAL REFLUX DISEASE
     Dosage: (5 MG)
     Dates: start: 20040412, end: 20060717
  44. METOCLOPRAMIDE [Suspect]
     Indication: DIABETIC GASTROPARESIS
     Dosage: (5 MG)
     Dates: start: 20040412, end: 20060717
  45. METOCLOPRAMIDE [Suspect]
     Indication: NAUSEA
     Dosage: (5 MG)
     Dates: start: 20040412, end: 20060717
  46. SINEQUAN [Concomitant]
  47. NIASPAN [Concomitant]
  48. GUAIFENEX LA [Concomitant]
  49. DERMA-SMOOTHE/FS [Concomitant]
  50. PREDNISONE [Concomitant]
  51. TRIAMCINOLONE [Concomitant]
  52. TOBRADEX [Concomitant]
  53. ACEON [Concomitant]
  54. VIOXX [Concomitant]
  55. RENAGEL [Concomitant]
  56. NITROGLYCERIN [Concomitant]
  57. COMBIVENT [Concomitant]

REACTIONS (5)
  - EXTRAPYRAMIDAL DISORDER [None]
  - EMOTIONAL DISORDER [None]
  - ECONOMIC PROBLEM [None]
  - IMPAIRED GASTRIC EMPTYING [None]
  - TARDIVE DYSKINESIA [None]
